FAERS Safety Report 12325398 (Version 1)
Quarter: 2016Q2

REPORT INFORMATION
  Report Type: Spontaneous
  Country: IT (occurrence: IT)
  Receive Date: 20160502
  Receipt Date: 20160502
  Transmission Date: 20160815
  Serious: Yes (Hospitalization)
  Sender: FDA-Public Use
  Company Number: IT-NOVOPROD-489767

PATIENT
  Sex: Female
  Weight: 3 kg

DRUGS (5)
  1. NOVORAPID [Suspect]
     Active Substance: INSULIN ASPART
     Indication: PRODUCT USED FOR UNKNOWN INDICATION
     Dosage: 34 IU, QD
     Route: 064
  2. LEVEMIR [Suspect]
     Active Substance: INSULIN DETEMIR
     Indication: PRODUCT USED FOR UNKNOWN INDICATION
     Dosage: 10 IU, QD
     Route: 064
  3. LEVEMIR [Suspect]
     Active Substance: INSULIN DETEMIR
     Dosage: 24 IU, QD
     Route: 064
  4. NOVORAPID [Suspect]
     Active Substance: INSULIN ASPART
     Dosage: 67 IU, QD
     Route: 064
  5. ALPHA-METHYLDOPA [Concomitant]
     Active Substance: METHYLDOPA
     Dosage: UNK
     Route: 064

REACTIONS (5)
  - Premature baby [Unknown]
  - Foetal exposure during pregnancy [Recovered/Resolved]
  - Infantile apnoea [Unknown]
  - Weight decreased [Unknown]
  - Blood bilirubin increased [Unknown]
